FAERS Safety Report 4317645-X (Version None)
Quarter: 2004Q1

REPORT INFORMATION
  Report Type: 
  Country: None (occurrence: None)
  Receive Date: 20040315
  Receipt Date: 20040225
  Transmission Date: 20041129
  Serious: Yes (Other)
  Sender: FDA-Public Use
  Company Number: JP-GLAXOSMITHKLINE-B0324681A

PATIENT
  Age: 28 Year
  Sex: Female

DRUGS (5)
  1. PAXIL [Suspect]
     Dosage: 10MG PER DAY
     Route: 048
     Dates: start: 20031209, end: 20040220
  2. DOGMATYL [Suspect]
     Dosage: 150MG PER DAY
     Route: 048
     Dates: start: 20031219, end: 20040220
  3. ESTAZOLAM [Concomitant]
     Dosage: 2MG PER DAY
     Route: 048
     Dates: start: 20031219, end: 20040218
  4. MYSLEE [Concomitant]
     Dosage: 10MG PER DAY
     Route: 048
     Dates: start: 20031209
  5. HALCION [Concomitant]
     Dosage: .25MG PER DAY
     Route: 048
     Dates: start: 20030113

REACTIONS (4)
  - DIARRHOEA [None]
  - PYREXIA [None]
  - SEROTONIN SYNDROME [None]
  - VOMITING [None]
